FAERS Safety Report 23418001 (Version 2)
Quarter: 2024Q1

REPORT INFORMATION
  Report Type: Spontaneous
  Country: IT (occurrence: IT)
  Receive Date: 20240118
  Receipt Date: 20240201
  Transmission Date: 20240410
  Serious: Yes (Other)
  Sender: FDA-Public Use
  Company Number: IT-ABBVIE-5593597

PATIENT
  Age: 40 Year
  Sex: Male

DRUGS (3)
  1. OZURDEX [Suspect]
     Active Substance: DEXAMETHASONE
     Indication: Diabetic retinal oedema
     Dosage: TIME INTERVAL: AS NECESSARY: IN THE RIGHT EYE?FORM STRENGTH: 700 ?G
     Route: 050
  2. OZURDEX [Suspect]
     Active Substance: DEXAMETHASONE
     Dosage: TIME INTERVAL: AS NECESSARY: IN THE LEFT EYE?FORM STRENGTH: 700 ?G
     Route: 050
  3. AFLIBERCEPT [Concomitant]
     Active Substance: AFLIBERCEPT
     Indication: Visual acuity reduced
     Dosage: MONTHLY CYCLE OF 3 WAS PERFORMED IN THE LEFT EYE
     Route: 050

REACTIONS (3)
  - Macular oedema [Unknown]
  - Intraocular pressure increased [Unknown]
  - Product administered at inappropriate site [Unknown]
